FAERS Safety Report 22019411 (Version 2)
Quarter: 2023Q2

REPORT INFORMATION
  Report Type: Report from Study
  Country: US (occurrence: US)
  Receive Date: 20230222
  Receipt Date: 20230516
  Transmission Date: 20230722
  Serious: Yes (Other)
  Sender: FDA-Public Use
  Company Number: US-002147023-NVSC2023US035469

PATIENT
  Age: 69 Year
  Sex: Female

DRUGS (1)
  1. MYFORTIC [Suspect]
     Active Substance: MYCOPHENOLATE SODIUM
     Indication: Renal transplant
     Dosage: 4 DOSAGE FORM, BID
     Route: 048
     Dates: start: 201512

REACTIONS (8)
  - Cerebrovascular accident [Unknown]
  - Ischaemic cerebral infarction [Unknown]
  - Carotid arteriosclerosis [Unknown]
  - Vertebral artery hypoplasia [Unknown]
  - Vertebral artery stenosis [Unknown]
  - Cerebral small vessel ischaemic disease [Unknown]
  - Arteriosclerosis [Unknown]
  - Gliosis [Unknown]

NARRATIVE: CASE EVENT DATE: 20220826
